FAERS Safety Report 9931593 (Version 2)
Quarter: 2014Q1

REPORT INFORMATION
  Report Type: Spontaneous
  Country: SE (occurrence: SE)
  Receive Date: 20140228
  Receipt Date: 20140228
  Transmission Date: 20141002
  Serious: Yes (Hospitalization)
  Sender: FDA-Public Use
  Company Number: SE-TEVA-453724USA

PATIENT
  Age: 67 Year
  Sex: Male

DRUGS (1)
  1. RIBOVACT [Suspect]
     Dates: start: 201309, end: 201311

REACTIONS (7)
  - Pyrexia [Recovered/Resolved]
  - Hypersensitivity [Recovered/Resolved]
  - Hypotension [Recovered/Resolved]
  - General physical health deterioration [Recovered/Resolved]
  - Respiratory failure [Recovered/Resolved]
  - Oliguria [Recovered/Resolved]
  - Erythema [Recovered/Resolved]
